FAERS Safety Report 10048493 (Version 2)
Quarter: 2014Q2

REPORT INFORMATION
  Report Type: Report from Study
  Country: CN (occurrence: CN)
  Receive Date: 20140331
  Receipt Date: 20140525
  Transmission Date: 20141212
  Serious: Yes (Hospitalization)
  Sender: FDA-Public Use
  Company Number: CN-BRISTOL-MYERS SQUIBB COMPANY-20566386

PATIENT
  Age: 41 Year
  Sex: Male
  Weight: 85 kg

DRUGS (1)
  1. BYETTA [Suspect]
     Indication: DIABETES MELLITUS
     Route: 058
     Dates: start: 20140312, end: 20140314

REACTIONS (4)
  - Cardiac disorder [Unknown]
  - Nausea [Recovered/Resolved]
  - Vomiting [Recovered/Resolved]
  - Asthenia [Not Recovered/Not Resolved]
